FAERS Safety Report 25206608 (Version 1)
Quarter: 2025Q2

REPORT INFORMATION
  Report Type: Spontaneous
  Country: NL (occurrence: NL)
  Receive Date: 20250417
  Receipt Date: 20250417
  Transmission Date: 20250716
  Serious: Yes (Death, Life-Threatening, Hospitalization, Other)
  Sender: STRIDES
  Company Number: NL-STRIDES ARCOLAB LIMITED-2025SP004771

PATIENT
  Age: 23 Year
  Sex: Male

DRUGS (4)
  1. OXYCODONE [Suspect]
     Active Substance: OXYCODONE
     Indication: Drug abuse
     Route: 065
  2. OXYCODONE [Suspect]
     Active Substance: OXYCODONE
     Indication: Intentional overdose
  3. QUETIAPINE [Suspect]
     Active Substance: QUETIAPINE
     Indication: Drug abuse
     Route: 065
  4. QUETIAPINE [Suspect]
     Active Substance: QUETIAPINE
     Indication: Intentional overdose

REACTIONS (11)
  - Toxic leukoencephalopathy [Fatal]
  - Intentional overdose [Fatal]
  - Drug abuse [Fatal]
  - Acute kidney injury [Unknown]
  - Hyperkalaemia [Unknown]
  - Hepatic failure [Unknown]
  - Rhabdomyolysis [Unknown]
  - Hyperlactacidaemia [Unknown]
  - Renal failure [Unknown]
  - Shock [Unknown]
  - Coma [Unknown]
